FAERS Safety Report 7542603-1 (Version None)
Quarter: 2011Q2

REPORT INFORMATION
  Report Type: 
  Country: None (occurrence: None)
  Receive Date: 20110524
  Receipt Date: 20110421
  Transmission Date: 20111010
  Serious: No
  Sender: FDA-Public Use
  Company Number: 018374

PATIENT
  Sex: Female

DRUGS (2)
  1. CIMZIA [Suspect]
     Indication: CROHN'S DISEASE
     Dosage: (SUBCUTANEOUS), (SUBCUTANEOUS), (400 MG 1X/4 WEEKS SUBCUTANEOUS)
     Route: 058
     Dates: start: 20100715
  2. CIMZIA [Suspect]

REACTIONS (11)
  - VOMITING [None]
  - OROPHARYNGEAL PAIN [None]
  - PAINFUL DEFAECATION [None]
  - FATIGUE [None]
  - HAEMATOCHEZIA [None]
  - ABDOMINAL PAIN [None]
  - FAECES HARD [None]
  - HEADACHE [None]
  - FUNGAL INFECTION [None]
  - MASS [None]
  - WRONG TECHNIQUE IN DRUG USAGE PROCESS [None]
